FAERS Safety Report 8372508-8 (Version None)
Quarter: 2012Q2

REPORT INFORMATION
  Report Type: 
  Country: None (occurrence: None)
  Receive Date: 20120521
  Receipt Date: 20120511
  Transmission Date: 20120825
  Serious: Yes (Other)
  Sender: FDA-Public Use
  Company Number: PHHY2012BR041096

PATIENT
  Sex: Male
  Weight: 78 kg

DRUGS (2)
  1. EXFORGE [Suspect]
     Indication: HYPERTENSION
     Dosage: 1 DF, DAILY (320/5MG)
  2. GALVUS MET [Concomitant]
     Indication: DIABETES MELLITUS
     Dosage: 1 DF, DAILY
     Route: 048

REACTIONS (11)
  - ERYSIPELAS [None]
  - FALL [None]
  - BLOOD PRESSURE FLUCTUATION [None]
  - TONGUE DISORDER [None]
  - DYSURIA [None]
  - HYPERGLYCAEMIA [None]
  - BREATH ODOUR [None]
  - CEREBROVASCULAR ACCIDENT [None]
  - HEAD INJURY [None]
  - URINARY INCONTINENCE [None]
  - WOUND [None]
